FAERS Safety Report 25775124 (Version 5)
Quarter: 2025Q4

REPORT INFORMATION
  Report Type: Spontaneous
  Country: US (occurrence: US)
  Receive Date: 20250909
  Receipt Date: 20251130
  Transmission Date: 20260117
  Serious: No
  Sender: BLUEPRINT MEDICINES
  Company Number: US-Blueprint Medicines Corporation-2025-AER-01944

PATIENT
  Age: 74 Year
  Sex: Female

DRUGS (4)
  1. AYVAKIT [Suspect]
     Active Substance: AVAPRITINIB
     Indication: Gastrointestinal stromal tumour
     Route: 065
     Dates: start: 20250821
  2. AYVAKIT [Suspect]
     Active Substance: AVAPRITINIB
     Route: 065
     Dates: start: 20250821
  3. AYVAKIT [Suspect]
     Active Substance: AVAPRITINIB
     Route: 065
     Dates: start: 20250821
  4. AYVAKIT [Suspect]
     Active Substance: AVAPRITINIB
     Route: 065
     Dates: start: 20250821

REACTIONS (17)
  - Sleep disorder [Unknown]
  - Nausea [Unknown]
  - Dry mouth [Unknown]
  - Dry eye [Unknown]
  - Visual impairment [Unknown]
  - Periorbital swelling [Unknown]
  - Vision blurred [Unknown]
  - Photopsia [Unknown]
  - Sinus congestion [Unknown]
  - Appetite disorder [Unknown]
  - Eating disorder [Unknown]
  - Hair colour changes [Unknown]
  - Gastrointestinal sounds abnormal [Unknown]
  - Diarrhoea [Unknown]
  - Abdominal discomfort [Unknown]
  - Fatigue [Unknown]
  - Unevaluable specimen [Unknown]
